FAERS Safety Report 4915030-0 (Version None)
Quarter: 2006Q1

REPORT INFORMATION
  Report Type: 
  Country: None (occurrence: None)
  Receive Date: 20060217
  Receipt Date: 20060207
  Transmission Date: 20060701
  Serious: Yes (Other)
  Sender: FDA-Public Use
  Company Number: PHBS2006AU02110

PATIENT
  Age: 57 Year
  Sex: Male

DRUGS (5)
  1. ZOLEDRONATE [Suspect]
     Indication: MULTIPLE MYELOMA
     Dosage: 4 MG
     Route: 042
  2. PAMIDRONATE DISODIUM [Suspect]
     Indication: MULTIPLE MYELOMA
     Dosage: 90 MG, ONCE/SINGLE
     Route: 042
  3. VINCRISTINE + ADRIAMYCIN + DEXAMETHASONE [Suspect]
  4. THALIDOMIDE [Concomitant]
  5. DEXAMETHASONE [Concomitant]

REACTIONS (10)
  - BLOOD CREATININE INCREASED [None]
  - BLOOD PARATHYROID HORMONE INCREASED [None]
  - ELECTROCARDIOGRAM QT PROLONGED [None]
  - HYPOCALCAEMIA [None]
  - HYPOMAGNESAEMIA [None]
  - NEPHROPATHY [None]
  - PARAESTHESIA [None]
  - RENAL IMPAIRMENT [None]
  - TETANY [None]
  - TUBULOINTERSTITIAL NEPHRITIS [None]
